FAERS Safety Report 5984275-3 (Version None)
Quarter: 2008Q4

REPORT INFORMATION
  Report Type: 
  Country: None (occurrence: None)
  Receive Date: 20081208
  Receipt Date: 20081201
  Transmission Date: 20090506
  Serious: Yes (Hospitalization)
  Sender: FDA-Public Use
  Company Number: FR-ASTRAZENECA-2008CG01763

PATIENT
  Age: 24383 Day
  Sex: Male

DRUGS (5)
  1. ATACAND [Suspect]
     Indication: HYPERTENSION
     Route: 048
     Dates: start: 20070101
  2. EFFEXOR [Suspect]
     Indication: DEPRESSION
     Route: 048
  3. VASTAREL [Suspect]
     Route: 048
  4. ZOLPIDEM [Suspect]
     Indication: INSOMNIA
     Route: 048
  5. SEROPLEX [Suspect]
     Indication: DEPRESSION
     Route: 048

REACTIONS (1)
  - MALAISE [None]
